FAERS Safety Report 13114892 (Version 1)
Quarter: 2017Q1

REPORT INFORMATION
  Report Type: Spontaneous
  Country: US (occurrence: US)
  Receive Date: 20170113
  Receipt Date: 20170113
  Transmission Date: 20170428
  Serious: Yes (Other)
  Sender: FDA-Public Use
  Company Number: US-SA-2017SA004866

PATIENT
  Age: 11 Year
  Sex: Female
  Weight: 40.82 kg

DRUGS (12)
  1. CEREZYME [Suspect]
     Active Substance: IMIGLUCERASE
     Indication: LIPIDOSIS
     Dosage: DOSE:68.59 UNIT(S)/KILOGRAM BODYWEIGHT
     Route: 041
  2. CEREZYME [Suspect]
     Active Substance: IMIGLUCERASE
     Indication: GAUCHER^S DISEASE
     Dosage: DOSE:68.59 UNIT(S)/KILOGRAM BODYWEIGHT
     Route: 041
  3. DIPHENHYDRAMINE. [Concomitant]
     Active Substance: DIPHENHYDRAMINE
     Indication: ANAPHYLACTIC REACTION
     Dosage: 2.5 MG/ML
     Route: 048
     Dates: start: 20160913
  4. SODIUM CHLORIDE. [Concomitant]
     Active Substance: SODIUM CHLORIDE
     Indication: FLUSHING
     Dosage: AS DIRECTED
     Route: 042
     Dates: start: 20160913
  5. EPIPEN [Concomitant]
     Active Substance: EPINEPHRINE
     Indication: ANAPHYLACTIC REACTION
     Route: 030
     Dates: start: 20160913
  6. LANTUS [Concomitant]
     Active Substance: INSULIN GLARGINE
     Dosage: FREQUENCY: EVERY EVENING DOSE:27 UNIT(S)
     Route: 058
     Dates: start: 20161223
  7. NORMAL SALINE [Concomitant]
     Active Substance: SODIUM CHLORIDE
     Route: 042
     Dates: start: 20160913
  8. HUMALOG [Concomitant]
     Active Substance: INSULIN LISPRO
     Dosage: AS DIRECTED DOSE:1 UNIT(S)
     Route: 058
     Dates: start: 20161223
  9. HEPARIN [Concomitant]
     Active Substance: HEPARIN SODIUM
     Indication: FLUSHING
     Dosage: DOSE:100 UNITS/ML
     Route: 042
     Dates: start: 20160913
  10. L-M-X [Concomitant]
     Indication: PREMEDICATION
     Route: 061
     Dates: start: 20160913
  11. LEXAPRO [Concomitant]
     Active Substance: ESCITALOPRAM OXALATE
     Route: 048
     Dates: start: 20161212
  12. LIDOCAINE/PRILOCAINE [Concomitant]
     Indication: PREMEDICATION
     Route: 061
     Dates: start: 20160913

REACTIONS (2)
  - Gastroenteritis viral [Unknown]
  - Diabetic ketoacidosis [Unknown]
